FAERS Safety Report 22168901 (Version 1)
Quarter: 2023Q2

REPORT INFORMATION
  Report Type: Spontaneous
  Country: US (occurrence: US)
  Receive Date: 20230403
  Receipt Date: 20230403
  Transmission Date: 20230722
  Serious: No
  Sender: FDA-Public Use
  Company Number: US-PURDUE PHARMA-USA-2023-0299226

PATIENT

DRUGS (1)
  1. BUPRENORPHINE [Suspect]
     Active Substance: BUPRENORPHINE
     Indication: Product used for unknown indication
     Dosage: UNK
     Route: 048

REACTIONS (12)
  - Feeling hot [Unknown]
  - Eye pain [Unknown]
  - Parosmia [Unknown]
  - Oral discomfort [Unknown]
  - Stomatitis [Unknown]
  - Tinnitus [Unknown]
  - Chest pain [Unknown]
  - Heart rate increased [Unknown]
  - Rash [Unknown]
  - Nausea [Unknown]
  - Product taste abnormal [Unknown]
  - Product quality issue [Unknown]
